FAERS Safety Report 22334204 (Version 3)
Quarter: 2024Q3

REPORT INFORMATION
  Report Type: Spontaneous
  Country: US (occurrence: US)
  Receive Date: 20230517
  Receipt Date: 20240903
  Transmission Date: 20241017
  Serious: Yes (Other)
  Sender: PFIZER
  Company Number: US-PFIZER INC-US-GBT-21-00997

PATIENT
  Age: 27 Year
  Sex: Female

DRUGS (2)
  1. OXBRYTA [Suspect]
     Active Substance: VOXELOTOR
     Indication: Sickle cell disease
     Dosage: 1500 MG, 1X/DAY
     Route: 048
     Dates: start: 202101
  2. OXBRYTA [Suspect]
     Active Substance: VOXELOTOR
     Dosage: 1500 MG, 1X/DAY (500MG, 3 TABLETS ONCE DAILY)
     Route: 048
     Dates: end: 2022

REACTIONS (4)
  - Sickle cell anaemia with crisis [Recovered/Resolved]
  - Headache [Recovering/Resolving]
  - Diarrhoea [Recovering/Resolving]
  - Product dose omission issue [Unknown]

NARRATIVE: CASE EVENT DATE: 20210101
